FAERS Safety Report 11935055 (Version 1)
Quarter: 2016Q1

REPORT INFORMATION
  Report Type: Spontaneous
  Country: US (occurrence: None)
  Receive Date: 20160120
  Receipt Date: 20160120
  Transmission Date: 20160526
  Serious: Yes (Hospitalization)
  Sender: FDA-Public Use
  Company Number: None

PATIENT
  Age: 19 Year
  Sex: Male
  Weight: 61.24 kg

DRUGS (1)
  1. SULFAMETHOXAZOLE/TRIMETHOPRIM 800 MG/160MG MUTUAL PHA [Suspect]
     Active Substance: SULFAMETHOXAZOLE\TRIMETHOPRIM
     Indication: ACNE
     Route: 048
     Dates: start: 20140819, end: 20150915

REACTIONS (6)
  - Skin exfoliation [None]
  - Rash [None]
  - Thermal burn [None]
  - Viral infection [None]
  - Pruritus [None]
  - Yellow skin [None]

NARRATIVE: CASE EVENT DATE: 20150919
